FAERS Safety Report 19806657 (Version 1)
Quarter: 2021Q3

REPORT INFORMATION
  Report Type: Report from Study
  Country: IT (occurrence: IT)
  Receive Date: 20210909
  Receipt Date: 20210909
  Transmission Date: 20211014
  Serious: Yes (Other)
  Sender: FDA-Public Use
  Company Number: IT-CELLTRION INC.-2021IT012001

PATIENT

DRUGS (15)
  1. TRUXIMA [Suspect]
     Active Substance: RITUXIMAB-ABBS
     Indication: RHEUMATOID ARTHRITIS
     Dosage: 1000 MG, CYCLIC
     Route: 042
     Dates: start: 20200204, end: 20210618
  2. DIBASE [Concomitant]
     Active Substance: CHOLECALCIFEROL
     Indication: VITAMIN D DEFICIENCY
     Dosage: 50 KILO?INTERNATIONAL UNIT
     Route: 048
  3. ABILIFY [Concomitant]
     Active Substance: ARIPIPRAZOLE
     Indication: SCHIZOPHRENIA
     Dosage: 10 MG, AS NECESSARY
     Route: 048
  4. SERTRALINE [Concomitant]
     Active Substance: SERTRALINE HYDROCHLORIDE
     Indication: DEPRESSION
     Dosage: 300 MG, EVERY 1 DAY
     Route: 048
  5. NOZINAN [Concomitant]
     Active Substance: LEVOMEPROMAZINE
     Indication: SCHIZOPHRENIA
     Dosage: 25 MG, EVERY 1 DAY
     Route: 048
  6. TAVOR [Concomitant]
     Indication: ANXIETY
     Dosage: 2.5 MG, EVERY 1 DAY
     Route: 048
  7. DELTACORTENE [Concomitant]
     Active Substance: PREDNISONE
     Indication: RHEUMATOID ARTHRITIS
     Dosage: 7.5 MG, EVERY 1 DAY
     Route: 048
  8. ATARAX [Concomitant]
     Active Substance: HYDROXYZINE HYDROCHLORIDE
     Indication: ANXIETY
     Dosage: 25 MG,EVERY 1 DAY
     Route: 048
  9. TARGIN [Concomitant]
     Active Substance: NALOXONE HYDROCHLORIDE\OXYCODONE HYDROCHLORIDE
     Indication: PAIN
     Dosage: 2 DF, EVERY 1 DAY
     Route: 048
  10. RIOPAN [Concomitant]
     Indication: GASTRITIS
     Dosage: 1600 MG, EVERY 1 DAY
     Route: 048
  11. BINOSTO [Concomitant]
     Active Substance: ALENDRONATE SODIUM
     Indication: OSTEOPOROSIS POSTMENOPAUSAL
     Dosage: 70 MG, 1 EVERY WEEK
     Route: 048
  12. OLEVIA [Concomitant]
     Active Substance: OMEGA-3-ACID ETHYL ESTERS
     Indication: HYPERTRIGLYCERIDAEMIA
     Dosage: 1000 MG, EVERY 1 DAY
     Route: 048
  13. LAMIVUDINE. [Concomitant]
     Active Substance: LAMIVUDINE
     Indication: HEPATITIS B
     Dosage: 300 MG, EVERY 1 DAY
     Route: 048
  14. PLAQUENIL [Concomitant]
     Active Substance: HYDROXYCHLOROQUINE SULFATE
     Indication: RHEUMATOID ARTHRITIS
     Dosage: 400 MG, EVERY 1 DAY
     Route: 048
  15. ESOMEPRAZOLE SODIUM. [Concomitant]
     Active Substance: ESOMEPRAZOLE SODIUM
     Indication: PROPHYLAXIS AGAINST GASTROINTESTINAL ULCER
     Dosage: 40 MG, EVERY 1 DAY
     Route: 048

REACTIONS (3)
  - Tongue oedema [Recovered/Resolved]
  - Dysphagia [Recovered/Resolved]
  - Oral pruritus [Recovered/Resolved]

NARRATIVE: CASE EVENT DATE: 20210618
